FAERS Safety Report 11919909 (Version 16)
Quarter: 2016Q3

REPORT INFORMATION
  Report Type: Spontaneous
  Country: CN (occurrence: CN)
  Receive Date: 20160115
  Receipt Date: 20160705
  Transmission Date: 20161109
  Serious: Yes (Hospitalization)
  Sender: FDA-Public Use
  Company Number: CN-009507513-1512CHN014118

PATIENT
  Age: 57 Year
  Sex: Male
  Weight: 63 kg

DRUGS (23)
  1. EMEND [Suspect]
     Active Substance: APREPITANT
     Indication: PROPHYLAXIS OF NAUSEA AND VOMITING
     Dosage: 125 MG, ONCE ON DAY 1
     Route: 048
     Dates: start: 20151211, end: 20151211
  2. EMEND [Suspect]
     Active Substance: APREPITANT
     Dosage: 80 MG, ON DAY 2
     Route: 048
     Dates: start: 20151212, end: 20151212
  3. GEMCITABINE [Concomitant]
     Active Substance: GEMCITABINE\GEMCITABINE HYDROCHLORIDE
     Indication: CHEMOTHERAPY
     Dosage: 1.6 G, D1 AND D8; TREATMENT CYCLE 2/UNK
     Route: 041
     Dates: start: 20151211, end: 20151220
  4. CARBAZOCHROME SODIUM SULFONATE [Concomitant]
     Active Substance: CARBAZOCHROME SODIUM SULFONATE
     Indication: HAEMORRHAGE PROPHYLAXIS
     Dosage: 80 MG, QD
     Route: 041
     Dates: start: 20151206, end: 20151221
  5. TROPISETRON HYDROCHLORIDE [Concomitant]
     Active Substance: TROPISETRON HYDROCHLORIDE
     Indication: PROPHYLAXIS OF NAUSEA AND VOMITING
     Dosage: 5 MG, QD
     Route: 041
     Dates: start: 20151211, end: 20151220
  6. THYMALFASIN [Concomitant]
     Active Substance: THYMALFASIN
     Indication: IMMUNE ENHANCEMENT THERAPY
     Dosage: TOTAL DAILY DOSE 1.6 MG, BIW
     Route: 058
     Dates: start: 20151202, end: 20151221
  7. XUAN FEI ZHI KE HEI JI [Concomitant]
     Indication: PRODUCTIVE COUGH
     Dosage: TOTAL DAILY DOSE 20 ML/CC, TID
     Route: 048
     Dates: start: 20151202, end: 20151210
  8. HEMOCOAGULASE [Concomitant]
     Indication: ANTICOAGULANT THERAPY
     Dosage: STRENGTH: 2 U, 2 UNITS DAILY
     Route: 058
     Dates: start: 20151206, end: 20151221
  9. DOXOFYLLINE [Concomitant]
     Active Substance: DOXOFYLLINE
     Indication: WHEEZING
     Dosage: 0.2 G, QD
     Route: 041
     Dates: start: 20151202, end: 20151210
  10. BROMHEXINE HYDROCHLORIDE [Concomitant]
     Active Substance: BROMHEXINE HYDROCHLORIDE
     Indication: PRODUCTIVE COUGH
     Dosage: 4 MG, QD
     Route: 041
     Dates: start: 20151202, end: 20151210
  11. PROMETHAZINE [Concomitant]
     Active Substance: PROMETHAZINE\PROMETHAZINE HYDROCHLORIDE
     Indication: VOMITING
     Dosage: 25 MG, QD
     Route: 030
     Dates: start: 20151211, end: 20151213
  12. IOVERSOL [Concomitant]
     Active Substance: IOVERSOL
     Indication: X-RAY
     Dosage: 67.8 G, ONCE
     Route: 042
     Dates: start: 20151202, end: 20151202
  13. BISACODYL. [Concomitant]
     Active Substance: BISACODYL
     Indication: PURGING
     Dosage: 5 MG, QPM (QN)
     Route: 048
     Dates: start: 20151210, end: 20151217
  14. PHOSPHATIDYL CHOLINE [Concomitant]
     Active Substance: LECITHIN
     Indication: LIVER DISORDER
     Dosage: 20 MG, QD
     Route: 041
     Dates: start: 20151211
  15. JAVA BRUCEA [Concomitant]
     Indication: NEOPLASM
     Dosage: 30 ML/CC, QD, FORMULATION OIL EMULSION
     Route: 041
     Dates: start: 20151202, end: 20151210
  16. CEPHRADINE [Concomitant]
     Active Substance: CEPHRADINE
     Indication: ANTI-INFECTIVE THERAPY
     Dosage: TOTAL DAILY DOSE: 2G, BID
     Route: 041
     Dates: start: 20151204, end: 20151210
  17. DEXAMETHASONE SODIUM PHOSPHATE. [Concomitant]
     Active Substance: DEXAMETHASONE SODIUM PHOSPHATE
     Indication: IMMUNE TOLERANCE INDUCTION
     Dosage: 5 MG, ONCE
     Route: 042
     Dates: start: 20151202, end: 20151202
  18. CODEINE PHOSPHATE (+) IBUPROFEN [Concomitant]
     Indication: COUGH
     Dosage: TOTAL DAILY DOSE 0.426 G, BID
     Route: 048
     Dates: start: 20151210, end: 20151221
  19. LANSOPRAZOLE. [Concomitant]
     Active Substance: LANSOPRAZOLE
     Indication: ANTACID THERAPY
     Dosage: 30 MG, QD
     Route: 041
     Dates: start: 20151211, end: 20151221
  20. PYRIDOXINE [Concomitant]
     Active Substance: PYRIDOXINE
     Indication: PROPHYLAXIS OF NAUSEA AND VOMITING
     Dosage: 200 MG, QD
     Route: 041
     Dates: start: 20151211, end: 20151213
  21. EMEND [Suspect]
     Active Substance: APREPITANT
     Dosage: 80 MG, ON DAY 3
     Route: 048
     Dates: start: 20151213, end: 20151213
  22. DEXAMETHASONE. [Concomitant]
     Active Substance: DEXAMETHASONE
     Indication: PROPHYLAXIS OF NAUSEA AND VOMITING
     Dosage: 5 MG, QD
     Route: 042
     Dates: start: 20151211, end: 20151220
  23. CISPLATIN. [Concomitant]
     Active Substance: CISPLATIN
     Indication: CHEMOTHERAPY
     Dosage: 40 MG, D1 TO D3, CYCLE:2/UNK
     Route: 041
     Dates: start: 20151211, end: 20151213

REACTIONS (8)
  - Constipation [Recovered/Resolved]
  - White blood cell count decreased [Recovered/Resolved]
  - Asthenia [Recovered/Resolved]
  - Anaemia [Recovered/Resolved]
  - Decreased appetite [Recovered/Resolved]
  - Hepatic function abnormal [Recovering/Resolving]
  - Platelet count decreased [Recovered/Resolved]
  - Neutrophil count decreased [Recovered/Resolved]

NARRATIVE: CASE EVENT DATE: 20151212
